FAERS Safety Report 8338488-6 (Version None)
Quarter: 2012Q1

REPORT INFORMATION
  Report Type: 
  Country: None (occurrence: None)
  Receive Date: 20120329
  Receipt Date: 20081106
  Transmission Date: 20120608
  Serious: Yes (Other)
  Sender: FDA-Public Use
  Company Number: PHEH2008US09993

PATIENT
  Sex: Male

DRUGS (2)
  1. NAMENDA [Concomitant]
  2. EXELON [Suspect]
     Dosage: TRANSDERMAL
     Route: 062
     Dates: start: 20081103

REACTIONS (2)
  - HALLUCINATION [None]
  - EXPIRED DRUG ADMINISTERED [None]
